FAERS Safety Report 14079830 (Version 1)
Quarter: 2017Q4

REPORT INFORMATION
  Report Type: Spontaneous
  Country: US (occurrence: US)
  Receive Date: 20171012
  Receipt Date: 20171012
  Transmission Date: 20180321
  Serious: No
  Sender: FDA-Public Use
  Company Number: US-AMNEAL PHARMACEUTICALS-2017AMN00760

PATIENT
  Age: 74 Year
  Sex: Female
  Weight: 86.17 kg

DRUGS (4)
  1. DICLOFENAC SODIUM. [Suspect]
     Active Substance: DICLOFENAC SODIUM
  2. TOPROL XL [Concomitant]
     Active Substance: METOPROLOL SUCCINATE
     Dosage: UNK, 2X/DAY
     Route: 061
  3. NORVASC [Concomitant]
     Active Substance: AMLODIPINE BESYLATE
  4. IRBESARTAN. [Concomitant]
     Active Substance: IRBESARTAN

REACTIONS (2)
  - Palpitations [Recovered/Resolved]
  - Skin burning sensation [Recovered/Resolved]

NARRATIVE: CASE EVENT DATE: 20170719
